FAERS Safety Report 24551806 (Version 1)
Quarter: 2024Q4

REPORT INFORMATION
  Report Type: Spontaneous
  Country: JP (occurrence: JP)
  Receive Date: 20241026
  Receipt Date: 20241026
  Transmission Date: 20250114
  Serious: Yes (Hospitalization, Other)
  Sender: CELLTRION
  Company Number: JP-CELLTRION INC.-2024JP021115

PATIENT

DRUGS (5)
  1. TRASTUZUMAB [Suspect]
     Active Substance: TRASTUZUMAB
     Indication: Gastric cancer stage IV
     Dosage: 150 MILLIGRAM
     Route: 041
     Dates: start: 20240530, end: 20240801
  2. TRASTUZUMAB [Suspect]
     Active Substance: TRASTUZUMAB
     Dosage: 100 MILLIGRAM
     Route: 041
     Dates: start: 20240530, end: 20240801
  3. TRASTUZUMAB [Suspect]
     Active Substance: TRASTUZUMAB
     Dosage: 100 MG
     Route: 041
     Dates: start: 20240530, end: 20240801
  4. OXALIPLATIN [Concomitant]
     Active Substance: OXALIPLATIN
     Indication: Gastric cancer stage IV
     Dosage: UNK
     Dates: start: 20240530, end: 20240801
  5. TS-1 [Concomitant]
     Active Substance: GIMERACIL\OTERACIL POTASSIUM\TEGAFUR
     Indication: Gastric cancer stage IV
     Dosage: UNK
     Dates: start: 20240530, end: 20240801

REACTIONS (1)
  - Gastrointestinal perforation [Recovered/Resolved]

NARRATIVE: CASE EVENT DATE: 20240819
